FAERS Safety Report 13685281 (Version 1)
Quarter: 2017Q2

REPORT INFORMATION
  Report Type: Spontaneous
  Country: KZ (occurrence: KZ)
  Receive Date: 20170623
  Receipt Date: 20170623
  Transmission Date: 20170830
  Serious: Yes (Other)
  Sender: FDA-Public Use
  Company Number: KZ-GLAXOSMITHKLINE-KZ2017GSK092216

PATIENT
  Sex: Female

DRUGS (3)
  1. LAMICTAL [Suspect]
     Active Substance: LAMOTRIGINE
     Indication: EPILEPSY
     Dosage: 400 MG, QD
  2. ACIDUM VALPROICUM [Suspect]
     Active Substance: VALPROIC ACID
     Indication: PRODUCT USED FOR UNKNOWN INDICATION
     Dosage: UNK, 1800 OR 2000 MG QD
  3. DEPAKINE CHRONO (VALPROIC ACID) [Suspect]
     Active Substance: VALPROIC ACID
     Indication: PRODUCT USED FOR UNKNOWN INDICATION
     Dosage: UNK, 1800 OR 2000 MG QD

REACTIONS (10)
  - Asthenia [Unknown]
  - Headache [Unknown]
  - Drug ineffective [Recovered/Resolved]
  - Dizziness [Unknown]
  - Hypertension [Unknown]
  - Loss of consciousness [Unknown]
  - Seizure [Unknown]
  - Encephalopathy [Unknown]
  - Somnolence [Unknown]
  - Drug resistance [Unknown]
